FAERS Safety Report 9869679 (Version 1)
Quarter: 2014Q1

REPORT INFORMATION
  Report Type: Spontaneous
  Country: US (occurrence: None)
  Receive Date: 20140203
  Receipt Date: 20140203
  Transmission Date: 20141002
  Serious: Yes (Hospitalization)
  Sender: FDA-Public Use
  Company Number: None

PATIENT
  Age: 23 Year
  Sex: Male
  Weight: 68 kg

DRUGS (8)
  1. CYCLOPHOSPHAMIDE [Suspect]
  2. CYTARABINE [Suspect]
  3. DAUNORUBICIN [Suspect]
  4. MERCAPTOPURINE [Suspect]
  5. METHOTREXATE [Suspect]
  6. PEG-L-ASPARAGINASE (K-H) [Suspect]
  7. THIOGUANINE [Suspect]
  8. VINCRISTINE SULFATE [Suspect]

REACTIONS (2)
  - Pneumonia [None]
  - Haemoptysis [None]
